FAERS Safety Report 21604388 (Version 1)
Quarter: 2022Q4

REPORT INFORMATION
  Report Type: Spontaneous
  Country: US (occurrence: None)
  Receive Date: 20221115
  Receipt Date: 20221115
  Transmission Date: 20230112
  Serious: No
  Sender: FDA-Public Use
  Company Number: None

PATIENT
  Age: 54 Year
  Sex: Male
  Weight: 102.06 kg

DRUGS (1)
  1. LENALIDOMIDE [Suspect]
     Active Substance: LENALIDOMIDE
     Indication: Acute myeloid leukaemia
     Dosage: OTHER FREQUENCY : 21D ON 7D OFF;?
     Route: 048

REACTIONS (3)
  - Neuropathy peripheral [None]
  - Colorectal cancer [None]
  - Therapy cessation [None]
